FAERS Safety Report 16468442 (Version 1)
Quarter: 2019Q2

REPORT INFORMATION
  Report Type: Spontaneous
  Country: US (occurrence: US)
  Receive Date: 20190624
  Receipt Date: 20190624
  Transmission Date: 20190711
  Serious: Yes (Other)
  Sender: FDA-Public Use
  Company Number: US-PURACAP PHARMACEUTICAL LLC-2019EPC00164

PATIENT
  Age: 50 Year
  Sex: Male

DRUGS (3)
  1. KINKELIBA [Suspect]
     Active Substance: HERBALS
     Dosage: ^REGULARLY CONSUMED^
     Route: 065
  2. IBUPROFEN. [Suspect]
     Active Substance: IBUPROFEN
     Indication: VOMITING
  3. IBUPROFEN. [Suspect]
     Active Substance: IBUPROFEN
     Indication: NAUSEA
     Dosage: ^TAKEN MULTIPLE TIMES^
     Route: 065

REACTIONS (3)
  - Acute kidney injury [Recovered/Resolved]
  - Proteinuria [Recovered/Resolved]
  - Haemoglobinaemia [Recovered/Resolved]
